FAERS Safety Report 5408130-2 (Version None)
Quarter: 2007Q3

REPORT INFORMATION
  Report Type: 
  Country: None (occurrence: None)
  Receive Date: 20070806
  Receipt Date: 20070806
  Transmission Date: 20080115
  Serious: No
  Sender: FDA-Public Use
  Company Number: None

PATIENT
  Age: 56 Year
  Sex: Male
  Weight: 90.7194 kg

DRUGS (1)
  1. OPTIRAY 350 [Suspect]
     Dosage: 100CC 2.0CC/SEC LT AC

REACTIONS (1)
  - URTICARIA [None]
